FAERS Safety Report 25569411 (Version 1)
Quarter: 2025Q3

REPORT INFORMATION
  Report Type: Spontaneous
  Country: US (occurrence: US)
  Receive Date: 20250716
  Receipt Date: 20250716
  Transmission Date: 20251021
  Serious: No
  Sender: SANOFI AVENTIS
  Company Number: US-SA-2025SA199962

PATIENT
  Sex: Female
  Weight: 71.82 kg

DRUGS (21)
  1. DUPIXENT [Suspect]
     Active Substance: DUPILUMAB
     Indication: Urticaria
     Dosage: 300 MG, QOW
     Route: 058
  2. DUPIXENT [Suspect]
     Active Substance: DUPILUMAB
     Indication: Illness
  3. ALBUTEROL SULFATE [Concomitant]
     Active Substance: ALBUTEROL SULFATE
  4. XOLAIR [Concomitant]
     Active Substance: OMALIZUMAB
  5. SYMBICORT [Concomitant]
     Active Substance: BUDESONIDE\FORMOTEROL FUMARATE DIHYDRATE
  6. PILOCARPINE HYDROCHLORIDE [Concomitant]
     Active Substance: PILOCARPINE HYDROCHLORIDE
  7. TOPIRAMATE [Concomitant]
     Active Substance: TOPIRAMATE
  8. WELLBUTRIN SR [Concomitant]
     Active Substance: BUPROPION HYDROCHLORIDE
  9. B12 ACTIVE [Concomitant]
  10. PROPRANOLOL HYDROCHLORIDE [Concomitant]
     Active Substance: PROPRANOLOL HYDROCHLORIDE
  11. TRINTELLIX [Concomitant]
     Active Substance: VORTIOXETINE HYDROBROMIDE
  12. LAMOTRIGINE [Concomitant]
     Active Substance: LAMOTRIGINE
  13. POTASSIUM CHLORIDE [Concomitant]
     Active Substance: POTASSIUM CHLORIDE
  14. MYRBETRIQ [Concomitant]
     Active Substance: MIRABEGRON
  15. SPIRONOLACTONE [Concomitant]
     Active Substance: SPIRONOLACTONE
  16. KLONOPIN [Concomitant]
     Active Substance: CLONAZEPAM
  17. SINGULAIR [Concomitant]
     Active Substance: MONTELUKAST SODIUM
  18. BACLOFEN [Concomitant]
     Active Substance: BACLOFEN
  19. FAMOTIDINE [Concomitant]
     Active Substance: FAMOTIDINE
  20. NURTEC ODT [Concomitant]
     Active Substance: RIMEGEPANT SULFATE
  21. COLESEVELAM HYDROCHLORIDE [Concomitant]
     Active Substance: COLESEVELAM HYDROCHLORIDE

REACTIONS (2)
  - Pain [Unknown]
  - Product use in unapproved indication [Unknown]
